FAERS Safety Report 8217660-X (Version None)
Quarter: 2012Q1

REPORT INFORMATION
  Report Type: 
  Country: None (occurrence: None)
  Receive Date: 20120314
  Receipt Date: 20120301
  Transmission Date: 20120608
  Serious: No
  Sender: FDA-Public Use
  Company Number: TUK2012A00051

PATIENT
  Age: 82 Year
  Sex: Female

DRUGS (10)
  1. ALLOPURINOL [Concomitant]
  2. ASPIRIN [Concomitant]
  3. LEVOTHYROXINE SODIUM [Concomitant]
  4. GLICLAZIDE (GLICLAZIDE) [Concomitant]
  5. CALCICHEW D3 (COLECALCIFEROL, CALCIUM CARBONATE) [Concomitant]
  6. VALSARTAN [Concomitant]
  7. ALENDRONATE SODIUM [Concomitant]
  8. ATENOLOL [Concomitant]
  9. BENDROFLUMETHIAZIDE (BENDROFLUMETHIAZIDE) [Concomitant]
  10. PIOGLITAZONE [Suspect]
     Indication: PRODUCT USED FOR UNKNOWN INDICATION
     Dosage: 30 MG (30 MG, 1 IN 1 D) ORAL
     Route: 048
     Dates: start: 20100526, end: 20120221

REACTIONS (2)
  - BLADDER TRANSITIONAL CELL CARCINOMA [None]
  - HAEMATURIA [None]
